FAERS Safety Report 22207226 (Version 4)
Quarter: 2023Q4

REPORT INFORMATION
  Report Type: Spontaneous
  Country: US (occurrence: US)
  Receive Date: 20230413
  Receipt Date: 20231024
  Transmission Date: 20240110
  Serious: No
  Sender: FDA-Public Use
  Company Number: US-PFIZER INC-PV202300066287

PATIENT
  Age: 78 Year
  Sex: Female

DRUGS (1)
  1. IBRANCE [Suspect]
     Active Substance: PALBOCICLIB
     Indication: Metastases to bone
     Dosage: 100 MG, CYCLIC (DAILY FOR 21 DAYS, THEN A WEEK OFF)
     Route: 048

REACTIONS (3)
  - Sinusitis [Unknown]
  - Speech disorder [Unknown]
  - Malaise [Unknown]
